FAERS Safety Report 13027742 (Version 5)
Quarter: 2017Q1

REPORT INFORMATION
  Report Type: Report from Study
  Country: None (occurrence: PA)
  Receive Date: 20161214
  Receipt Date: 20170131
  Transmission Date: 20170428
  Serious: Yes (Death, Hospitalization, Other)
  Sender: FDA-Public Use
  Company Number: PA-ABBVIE-16P-125-1806450-00

PATIENT
  Age: 60 Year
  Sex: Female

DRUGS (1)
  1. ZEMPLAR [Suspect]
     Active Substance: PARICALCITOL
     Indication: HYPERPARATHYROIDISM SECONDARY
     Route: 042
     Dates: start: 20120901

REACTIONS (7)
  - Cardiac arrest [Fatal]
  - Cerebral atrophy [Not Recovered/Not Resolved]
  - Lethargy [Not Recovered/Not Resolved]
  - Disorientation [Not Recovered/Not Resolved]
  - Cerebellar atrophy [Not Recovered/Not Resolved]
  - Transfusion [Unknown]
  - Osteoporosis [Not Recovered/Not Resolved]

NARRATIVE: CASE EVENT DATE: 20161214
